FAERS Safety Report 14194111 (Version 1)
Quarter: 2017Q4

REPORT INFORMATION
  Report Type: Report from Study
  Country: BR (occurrence: BR)
  Receive Date: 20171116
  Receipt Date: 20171116
  Transmission Date: 20180321
  Serious: Yes (Other)
  Sender: FDA-Public Use
  Company Number: PHHY2017BR168020

PATIENT
  Sex: Male
  Weight: 107 kg

DRUGS (3)
  1. EXELON PATCH [Suspect]
     Active Substance: RIVASTIGMINE
     Indication: DEMENTIA ALZHEIMER^S TYPE
     Dosage: 4.6 MG, QD PATCH 5 (CM2)
     Route: 062
  2. EXELON PATCH [Suspect]
     Active Substance: RIVASTIGMINE
     Dosage: 9.5 MG, QD PATCH 10 (CM2)
     Route: 062
  3. EXELON PATCH [Suspect]
     Active Substance: RIVASTIGMINE
     Dosage: 13.3 MG, QD PATCH 15 (CM2)
     Route: 062

REACTIONS (12)
  - Retinal detachment [Recovering/Resolving]
  - Panic disorder [Unknown]
  - Memory impairment [Unknown]
  - Irritability [Unknown]
  - Body height decreased [Unknown]
  - Fear [Unknown]
  - Aggression [Unknown]
  - Neurodegenerative disorder [Recovering/Resolving]
  - Blindness unilateral [Unknown]
  - Gait disturbance [Unknown]
  - Mood altered [Unknown]
  - Photopsia [Not Recovered/Not Resolved]
